FAERS Safety Report 5551785-2 (Version None)
Quarter: 2007Q4

REPORT INFORMATION
  Report Type: 
  Country: None (occurrence: None)
  Receive Date: 20071212
  Receipt Date: 20071205
  Transmission Date: 20080405
  Serious: Yes (Hospitalization)
  Sender: FDA-Public Use
  Company Number: US-BOEHRINGER INGELHEIM PHARMACEUTICALS, INC.-2007-BP-24261BP

PATIENT
  Sex: Female
  Weight: 90 kg

DRUGS (19)
  1. MIRAPEX [Suspect]
     Indication: RESTLESS LEGS SYNDROME
     Route: 048
     Dates: start: 20070828, end: 20071016
  2. EFFEXOR [Suspect]
     Dates: start: 20070901
  3. DIOVAN [Concomitant]
  4. NORVASC [Concomitant]
  5. LABETALOL HCL [Concomitant]
  6. POTASSIUM CHLORIDE [Concomitant]
  7. NEXIUM [Concomitant]
  8. LASIX [Concomitant]
  9. ESTRATEST [Concomitant]
  10. MOBIC [Concomitant]
  11. VYTORIN [Concomitant]
  12. SINGULAIR [Concomitant]
  13. ADVAIR DISKUS 100/50 [Concomitant]
  14. FLONASE [Concomitant]
  15. ALBUTEROL [Concomitant]
  16. ASPIRIN [Concomitant]
  17. LORCET [Concomitant]
  18. MINOXIDIL [Concomitant]
  19. XANAX [Concomitant]

REACTIONS (9)
  - ASTHMA [None]
  - CEREBROVASCULAR ACCIDENT [None]
  - DIZZINESS [None]
  - DYSPNOEA [None]
  - LETHARGY [None]
  - ORTHOSTATIC HYPOTENSION [None]
  - RESPIRATORY FAILURE [None]
  - SOMNOLENCE [None]
  - SPEECH DISORDER [None]
